FAERS Safety Report 15084905 (Version 2)
Quarter: 2018Q2

REPORT INFORMATION
  Report Type: Spontaneous
  Country: JP (occurrence: JP)
  Receive Date: 20180628
  Receipt Date: 20180629
  Transmission Date: 20180711
  Serious: Yes (Hospitalization)
  Sender: FDA-Public Use
  Company Number: JP-FERRINGPH-2018FE03028

PATIENT

DRUGS (2)
  1. ESTRANA [Concomitant]
     Active Substance: ESTRADIOL
     Indication: PRODUCT USED FOR UNKNOWN INDICATION
     Dosage: 2 DF, UNK
     Route: 062
     Dates: start: 20171023, end: 20180103
  2. LUTINUS [Suspect]
     Active Substance: PROGESTERONE
     Indication: ASSISTED FERTILISATION
     Dosage: 3 DF, 1 TIME DAILY
     Route: 067
     Dates: start: 20171108, end: 20180103

REACTIONS (2)
  - Endometritis [Recovering/Resolving]
  - Salpingo-oophoritis [Recovering/Resolving]

NARRATIVE: CASE EVENT DATE: 20171114
